FAERS Safety Report 19011119 (Version 1)
Quarter: 2021Q1

REPORT INFORMATION
  Report Type: Report from Study
  Country: CA (occurrence: CA)
  Receive Date: 20210316
  Receipt Date: 20210316
  Transmission Date: 20210420
  Serious: Yes (Other)
  Sender: FDA-Public Use
  Company Number: NVSC2020CA322876

PATIENT
  Sex: Female

DRUGS (3)
  1. ARTHROTEC [Concomitant]
     Active Substance: DICLOFENAC SODIUM\MISOPROSTOL
     Indication: PRODUCT USED FOR UNKNOWN INDICATION
     Dosage: UNK UNK, BID
     Route: 048
     Dates: start: 20200901
  2. COSENTYX [Suspect]
     Active Substance: SECUKINUMAB
     Dosage: 150 MG, QMO
     Route: 058
     Dates: start: 20210223
  3. COSENTYX [Suspect]
     Active Substance: SECUKINUMAB
     Indication: ANKYLOSING SPONDYLITIS
     Dosage: 150 MG, QMO, (WEEKS 0, 1, 2, AND 3)
     Route: 058
     Dates: start: 20201126

REACTIONS (8)
  - Neoplasm malignant [Unknown]
  - Somnolence [Unknown]
  - Quality of life decreased [Unknown]
  - Tremor [Unknown]
  - Muscle spasms [Unknown]
  - Drug ineffective [Unknown]
  - Bipolar disorder [Unknown]
  - Therapeutic response unexpected [Unknown]
